FAERS Safety Report 4519287-X (Version None)
Quarter: 2004Q4

REPORT INFORMATION
  Report Type: 
  Country: None (occurrence: None)
  Receive Date: 20041206
  Receipt Date: 20040715
  Transmission Date: 20050328
  Serious: Yes (Other)
  Sender: FDA-Public Use
  Company Number: CA-GLAXOSMITHKLINE-A0518711A

PATIENT
  Age: 41 Year
  Sex: Male

DRUGS (1)
  1. ZOVIRAX [Suspect]
     Indication: KERATITIS HERPETIC
     Route: 061
     Dates: start: 20040629, end: 20040702

REACTIONS (6)
  - ACANTHAMOEBA INFECTION [None]
  - BLINDNESS UNILATERAL [None]
  - EYE DISORDER [None]
  - INJURY CORNEAL [None]
  - PHOTOPHOBIA [None]
  - VISUAL ACUITY REDUCED [None]
